FAERS Safety Report 10094388 (Version 5)
Quarter: 2016Q2

REPORT INFORMATION
  Report Type: Spontaneous
  Country: US (occurrence: US)
  Receive Date: 20140422
  Receipt Date: 20160625
  Transmission Date: 20160815
  Serious: Yes (Death, Hospitalization, Other)
  Sender: FDA-Public Use
  Company Number: US-JNJFOC-20140411670

PATIENT
  Sex: Female
  Weight: 86.18 kg

DRUGS (5)
  1. PRENATAL VITAMINS [Concomitant]
     Active Substance: VITAMINS
     Indication: PRODUCT USED FOR UNKNOWN INDICATION
     Route: 065
  2. TYLENOL EXTRA STRENGTH [Suspect]
     Active Substance: ACETAMINOPHEN
     Indication: INFLUENZA LIKE ILLNESS
     Dosage: 42PILLS OF 500MG OVER SIX CONSECUTIVE DAYS
     Route: 048
     Dates: start: 20120125, end: 20120131
  3. TYLENOL EXTRA STRENGTH [Suspect]
     Active Substance: ACETAMINOPHEN
     Indication: HEADACHE
     Dosage: 42PILLS OF 500MG OVER SIX CONSECUTIVE DAYS
     Route: 048
     Dates: start: 20120125, end: 20120131
  4. TYLENOL EXTRA STRENGTH [Suspect]
     Active Substance: ACETAMINOPHEN
     Indication: PAIN
     Dosage: 42PILLS OF 500MG OVER SIX CONSECUTIVE DAYS
     Route: 048
     Dates: start: 20120125, end: 20120131
  5. MAGNESIUM SULFATE. [Concomitant]
     Active Substance: MAGNESIUM SULFATE
     Indication: ECLAMPSIA
     Route: 065

REACTIONS (12)
  - Metabolic acidosis [Unknown]
  - Suicide attempt [Unknown]
  - Toxicity to various agents [Fatal]
  - Hepatic necrosis [Fatal]
  - Hypotension [Unknown]
  - Mobility decreased [Unknown]
  - Acute hepatic failure [Fatal]
  - Acute respiratory failure [Unknown]
  - Foetal death [Recovered/Resolved]
  - Exposure during pregnancy [Unknown]
  - Renal failure [Unknown]
  - Coagulopathy [Unknown]

NARRATIVE: CASE EVENT DATE: 2012
